FAERS Safety Report 21925525 (Version 1)
Quarter: 2023Q1

REPORT INFORMATION
  Report Type: Spontaneous
  Country: FR (occurrence: FR)
  Receive Date: 20230130
  Receipt Date: 20230130
  Transmission Date: 20230418
  Serious: Yes (Other)
  Sender: FDA-Public Use
  Company Number: FR-AFSSAPS-RS2023000057

PATIENT
  Age: 64 Year
  Sex: Male

DRUGS (2)
  1. LEVOFLOXACIN [Suspect]
     Active Substance: LEVOFLOXACIN
     Indication: Arthritis infective
     Dosage: UNK
     Route: 048
     Dates: start: 202212, end: 20230106
  2. RIFABUTIN [Suspect]
     Active Substance: RIFABUTIN
     Indication: Arthritis infective
     Dosage: UNK
     Route: 048
     Dates: start: 202212, end: 20230106

REACTIONS (2)
  - Thrombocytopenia [Recovering/Resolving]
  - Neutropenia [Recovering/Resolving]

NARRATIVE: CASE EVENT DATE: 20230105
